FAERS Safety Report 21965106 (Version 4)
Quarter: 2023Q2

REPORT INFORMATION
  Report Type: Report from Study
  Country: CO (occurrence: CO)
  Receive Date: 20230207
  Receipt Date: 20230616
  Transmission Date: 20230722
  Serious: Yes (Hospitalization, Other)
  Sender: FDA-Public Use
  Company Number: CO-ABBVIE-4297221

PATIENT
  Age: 68 Year
  Sex: Female
  Weight: 56 kg

DRUGS (1)
  1. ZEMPLAR [Suspect]
     Active Substance: PARICALCITOL
     Indication: Chronic kidney disease
     Dosage: 2 MICROGRAM
     Route: 048
     Dates: start: 20190603, end: 20230515

REACTIONS (27)
  - Choking [Recovering/Resolving]
  - Inflammation [Not Recovered/Not Resolved]
  - Illness [Not Recovered/Not Resolved]
  - Infection [Recovering/Resolving]
  - Angina unstable [Recovering/Resolving]
  - Lower limb fracture [Recovering/Resolving]
  - Fluid retention [Recovering/Resolving]
  - Hypervolaemia [Recovering/Resolving]
  - Dyspnoea [Recovering/Resolving]
  - Asthenia [Not Recovered/Not Resolved]
  - Feeling of despair [Recovering/Resolving]
  - Purulent discharge [Recovering/Resolving]
  - Chest pain [Recovering/Resolving]
  - Oxygen saturation decreased [Recovering/Resolving]
  - Bone disorder [Not Recovered/Not Resolved]
  - Posture abnormal [Not Recovered/Not Resolved]
  - Hypertension [Recovering/Resolving]
  - Ulcer [Recovering/Resolving]
  - Pain [Not Recovered/Not Resolved]
  - Walking aid user [Not Recovered/Not Resolved]
  - Fear [Recovering/Resolving]
  - Pain in extremity [Recovering/Resolving]
  - Fracture [Not Recovered/Not Resolved]
  - Pain in extremity [Not Recovered/Not Resolved]
  - Cardiac disorder [Recovering/Resolving]
  - Restlessness [Recovering/Resolving]
  - Skin exfoliation [Recovering/Resolving]

NARRATIVE: CASE EVENT DATE: 20220201
